FAERS Safety Report 9516349 (Version 2)
Quarter: 2013Q4

REPORT INFORMATION
  Report Type: Report from Study
  Country: MX (occurrence: MX)
  Receive Date: 20130911
  Receipt Date: 20131105
  Transmission Date: 20140711
  Serious: Yes (Hospitalization)
  Sender: FDA-Public Use
  Company Number: MX-ROCHE-1270480

PATIENT
  Sex: Female

DRUGS (2)
  1. HERCEPTIN [Suspect]
     Indication: BREAST CANCER
     Route: 065
  2. XELODA [Suspect]
     Indication: BREAST CANCER
     Route: 065

REACTIONS (6)
  - Cardiac failure [Unknown]
  - Pericardial effusion [Unknown]
  - Dyspnoea [Unknown]
  - Disease progression [Unknown]
  - Pleural effusion [Unknown]
  - Blood pressure decreased [Unknown]
